FAERS Safety Report 15663412 (Version 2)
Quarter: 2018Q4

REPORT INFORMATION
  Report Type: Report from Study
  Country: None (occurrence: CA)
  Receive Date: 20181128
  Receipt Date: 20181220
  Transmission Date: 20190205
  Serious: Yes (Other)
  Sender: FDA-Public Use
  Company Number: CA-ABBVIE-18K-028-2567791-00

PATIENT
  Age: 57 Year
  Sex: Male

DRUGS (3)
  1. TEMPASA [Concomitant]
     Indication: CROHN^S DISEASE
     Dosage: 3 TABLETS IN THE MORNING AND 2 TABLETS AT NIGHT
     Route: 048
  2. HUMIRA [Suspect]
     Active Substance: ADALIMUMAB
     Indication: CROHN^S DISEASE
     Route: 058
     Dates: start: 20130207
  3. SALOFALK [Concomitant]
     Active Substance: MESALAMINE
     Indication: CROHN^S DISEASE
     Dates: end: 2016

REACTIONS (5)
  - Intestinal obstruction [Recovered/Resolved]
  - Unevaluable event [Recovered/Resolved]
  - Crohn^s disease [Not Recovered/Not Resolved]
  - Gastrooesophageal sphincter insufficiency [Recovered/Resolved]
  - Retching [Unknown]

NARRATIVE: CASE EVENT DATE: 20170317
